FAERS Safety Report 6387608 (Version 2)
Quarter: 2014Q1

REPORT INFORMATION
  Report Type: Report from Study
  Country: IN (occurrence: IN)
  Receive Date: 20070821
  Receipt Date: 20140207
  Transmission Date: 20141002
  Serious: Yes (Death)
  Sender: FDA-Public Use
  Company Number: IN-ASTRAZENECA-2006AP02122

PATIENT
  Age: 23186 Day
  Sex: Female

DRUGS (6)
  1. FASLODEX [Suspect]
     Indication: BREAST CANCER
     Route: 030
  2. FASLODEX [Suspect]
     Indication: BREAST CANCER
     Route: 030
  3. FASLODEX [Suspect]
     Indication: BREAST CANCER
     Route: 030
     Dates: start: 20060410, end: 20060410
  4. METFORMIN [Concomitant]
     Indication: DIABETES MELLITUS
     Route: 048
     Dates: start: 200507, end: 20060311
  5. DIBIZIDE M [Concomitant]
     Indication: DIABETES MELLITUS
     Route: 048
     Dates: start: 20060312
  6. KETANOV [Concomitant]
     Indication: ABDOMINAL PAIN
     Route: 048
     Dates: start: 20060310

REACTIONS (1)
  - Hypertension [Fatal]
